FAERS Safety Report 4407327-8 (Version None)
Quarter: 2004Q3

REPORT INFORMATION
  Report Type: 
  Country: None (occurrence: None)
  Receive Date: 20040721
  Receipt Date: 20040709
  Transmission Date: 20050211
  Serious: Yes (Hospitalization)
  Sender: FDA-Public Use
  Company Number: 2004046351

PATIENT
  Sex: Female

DRUGS (1)
  1. VISINE-A [Suspect]
     Dosage: QD, OPHTHALMIC
     Dates: start: 20040601, end: 20040701

REACTIONS (1)
  - EPISTAXIS [None]
